FAERS Safety Report 5424965-4 (Version None)
Quarter: 2007Q3

REPORT INFORMATION
  Report Type: 
  Country: None (occurrence: None)
  Receive Date: 20070824
  Receipt Date: 20070813
  Transmission Date: 20080115
  Serious: Yes (Other)
  Sender: FDA-Public Use
  Company Number: B0458383A

PATIENT
  Age: 66 Year
  Sex: Female
  Weight: 62.7 kg

DRUGS (6)
  1. ZOFRAN [Suspect]
     Dosage: 8MG PER DAY
     Route: 042
     Dates: start: 20070122, end: 20070122
  2. ZOFRAN [Suspect]
     Indication: NAUSEA
     Dosage: 8MG TWICE PER DAY
     Route: 048
     Dates: start: 20070124, end: 20070128
  3. DETICENE [Suspect]
     Dosage: 850MGM2 SEE DOSAGE TEXT
     Route: 042
     Dates: start: 20070122, end: 20070122
  4. CHEMOTHERAPY [Suspect]
     Dosage: 10MGK SEE DOSAGE TEXT
     Route: 042
     Dates: start: 20070122, end: 20070122
  5. ATENOLOL [Concomitant]
     Dates: start: 19960101
  6. SERTRALINE [Concomitant]
     Indication: DEPRESSION
     Dates: start: 20040101

REACTIONS (2)
  - CHOLESTASIS [None]
  - HEPATOCELLULAR DAMAGE [None]
